FAERS Safety Report 11622647 (Version 1)
Quarter: 2015Q4

REPORT INFORMATION
  Report Type: Spontaneous
  Country: US (occurrence: US)
  Receive Date: 20151013
  Receipt Date: 20151013
  Transmission Date: 20160304
  Serious: No
  Sender: FDA-Public Use
  Company Number: US-JNJFOC-20150217628

PATIENT

DRUGS (2)
  1. CHILDRENS TYLENOL [Suspect]
     Active Substance: ACETAMINOPHEN
     Indication: ACCIDENTAL EXPOSURE TO PRODUCT
     Route: 048
  2. CHILDRENS TYLENOL [Suspect]
     Active Substance: ACETAMINOPHEN
     Route: 048

REACTIONS (2)
  - Accidental exposure to product [Unknown]
  - Product packaging issue [Unknown]
